FAERS Safety Report 7794824-0 (Version None)
Quarter: 2011Q3

REPORT INFORMATION
  Report Type: 
  Country: None (occurrence: None)
  Receive Date: 20110930
  Receipt Date: 20110916
  Transmission Date: 20111222
  Serious: Yes (Hospitalization)
  Sender: FDA-Public Use
  Company Number: TPA2011A06081

PATIENT
  Age: 75 Year
  Sex: Male

DRUGS (2)
  1. MARCUMAR [Suspect]
     Dosage: ORAL
     Route: 048
  2. ADENURIC (FEBUXOSTAT) [Suspect]
     Indication: GOUT
     Dosage: 80 MG (80 MG, 1 IN 1 D), ORAL
     Route: 048
     Dates: start: 20110828, end: 20110902

REACTIONS (6)
  - VERTIGO POSITIONAL [None]
  - EAR DISCOMFORT [None]
  - DRUG INTERACTION [None]
  - INTERNATIONAL NORMALISED RATIO DECREASED [None]
  - AURICULAR SWELLING [None]
  - EAR PRURITUS [None]
